FAERS Safety Report 16862740 (Version 1)
Quarter: 2019Q3

REPORT INFORMATION
  Report Type: Spontaneous
  Country: US (occurrence: US)
  Receive Date: 20190927
  Receipt Date: 20190927
  Transmission Date: 20191005
  Serious: No
  Sender: FDA-Public Use
  Company Number: US-009507513-1909USA012590

PATIENT
  Sex: Male

DRUGS (6)
  1. LEXAPRO [Concomitant]
     Active Substance: ESCITALOPRAM OXALATE
  2. KLONOPIN [Concomitant]
     Active Substance: CLONAZEPAM
  3. SINEMET [Suspect]
     Active Substance: CARBIDOPA\LEVODOPA
     Indication: PARKINSON^S DISEASE
     Dosage: 25/100
     Route: 048
     Dates: start: 201905, end: 201906
  4. SINEMET [Suspect]
     Active Substance: CARBIDOPA\LEVODOPA
     Dosage: LOWER DOSE
     Route: 048
     Dates: start: 201908
  5. HUMIRA [Concomitant]
     Active Substance: ADALIMUMAB
  6. TYLENOL [Concomitant]
     Active Substance: ACETAMINOPHEN

REACTIONS (4)
  - Musculoskeletal pain [Not Recovered/Not Resolved]
  - Pollakiuria [Not Recovered/Not Resolved]
  - Hypertension [Recovering/Resolving]
  - Headache [Not Recovered/Not Resolved]

NARRATIVE: CASE EVENT DATE: 2019
